FAERS Safety Report 5136310-2 (Version None)
Quarter: 2006Q4

REPORT INFORMATION
  Report Type: 
  Country: None (occurrence: None)
  Receive Date: 20061027
  Receipt Date: 20061018
  Transmission Date: 20070319
  Serious: Yes (Hospitalization)
  Sender: FDA-Public Use
  Company Number: JP-JPN-A200604428

PATIENT
  Age: 72 Year
  Sex: Female

DRUGS (1)
  1. ALKERAN [Suspect]
     Indication: STEM CELL TRANSPLANT
     Dosage: 100MGM2 UNKNOWN
     Route: 042

REACTIONS (3)
  - BACK PAIN [None]
  - MUSCLE HAEMORRHAGE [None]
  - PLATELET COUNT DECREASED [None]
